FAERS Safety Report 6322656-9 (Version None)
Quarter: 2009Q3

REPORT INFORMATION
  Report Type: 
  Country: None (occurrence: None)
  Receive Date: 20090817
  Receipt Date: 20090521
  Transmission Date: 20100115
  Serious: Yes (Other)
  Sender: FDA-Public Use
  Company Number: ADR-214-025

PATIENT
  Age: 40 Year
  Sex: Female
  Weight: 88.905 kg

DRUGS (9)
  1. SERTRALINE HYDROCHLORIDE [Suspect]
     Dosage: ORAL
     Route: 048
  2. ALTACE [Concomitant]
  3. AVANDIA [Concomitant]
  4. METFORMIN HCL [Concomitant]
  5. DURATUSS [Concomitant]
  6. ONE A DAY VITAMIN [Concomitant]
  7. ASPIRIN [Concomitant]
  8. VITAMIN E [Concomitant]
  9. VITAMIN B COMPLEX CAP [Concomitant]

REACTIONS (1)
  - FEELING ABNORMAL [None]
